FAERS Safety Report 19476509 (Version 1)
Quarter: 2021Q2

REPORT INFORMATION
  Report Type: Report from Study
  Country: CA (occurrence: CA)
  Receive Date: 20210630
  Receipt Date: 20210630
  Transmission Date: 20210717
  Serious: Yes (Other)
  Sender: FDA-Public Use
  Company Number: CA-JNJFOC-20210651909

PATIENT
  Age: 17 Year
  Sex: Male
  Weight: 55 kg

DRUGS (3)
  1. REMICADE [Suspect]
     Active Substance: INFLIXIMAB
     Indication: CROHN^S DISEASE
     Dosage: ON 23?JUN?2021, THE PATIENT RECEIVED 82ND INFUSION AT 825 MG
     Route: 042
     Dates: start: 20160210
  2. METHOTREXATE. [Concomitant]
     Active Substance: METHOTREXATE
     Indication: CROHN^S DISEASE
     Route: 048
  3. FLAGYL [Concomitant]
     Active Substance: METRONIDAZOLE\METRONIDAZOLE HYDROCHLORIDE
     Indication: PRODUCT USED FOR UNKNOWN INDICATION
     Route: 065

REACTIONS (3)
  - Incorrect drug administration rate [Unknown]
  - Off label use [Unknown]
  - Drain placement [Recovering/Resolving]

NARRATIVE: CASE EVENT DATE: 20210616
